FAERS Safety Report 6419632-4 (Version None)
Quarter: 2009Q4

REPORT INFORMATION
  Report Type: 
  Country: None (occurrence: None)
  Receive Date: 20091013
  Receipt Date: 20090811
  Transmission Date: 20100525
  Serious: No
  Sender: FDA-Public Use
  Company Number: 2009BM000188

PATIENT
  Age: 47 Year
  Sex: Female
  Weight: 87.5 kg

DRUGS (5)
  1. KUVAN [Suspect]
     Indication: PHENYLKETONURIA
     Dosage: 20 MG/KG;QD;PO
     Route: 048
     Dates: start: 20090525, end: 20090629
  2. NEXIUM [Concomitant]
  3. ALPRAZOLAM [Concomitant]
  4. HYDROCODONE [Concomitant]
  5. TYLENOL [Concomitant]

REACTIONS (3)
  - ABDOMINAL PAIN UPPER [None]
  - MALAISE [None]
  - THROAT IRRITATION [None]
